FAERS Safety Report 11875053 (Version 1)
Quarter: 2015Q4

REPORT INFORMATION
  Report Type: Spontaneous
  Country: FR (occurrence: FR)
  Receive Date: 20151229
  Receipt Date: 20151229
  Transmission Date: 20160305
  Serious: Yes (Death, Hospitalization)
  Sender: FDA-Public Use
  Company Number: FR-WATSON-2015-27955

PATIENT
  Age: 86 Year
  Sex: Male

DRUGS (3)
  1. DUROGESIC [Suspect]
     Active Substance: FENTANYL
     Indication: BONE PAIN
     Dosage: UNKNOWN
     Route: 003
     Dates: start: 201412, end: 20141229
  2. TRIPTORELIN (UNKNOWN) [Suspect]
     Active Substance: TRIPTORELIN
     Indication: PROSTATE CANCER
     Dosage: UNKNOWN
     Route: 065
     Dates: start: 20141215, end: 20141229
  3. CASODEX [Suspect]
     Active Substance: BICALUTAMIDE
     Indication: PROSTATE CANCER
     Dosage: UNKNOWN
     Route: 048
     Dates: start: 20141215, end: 20141229

REACTIONS (6)
  - Hepatitis fulminant [Fatal]
  - Miosis [Unknown]
  - Lymphopenia [Unknown]
  - Leukocytosis [Unknown]
  - Thrombocytopenia [Unknown]
  - Monocytosis [Unknown]

NARRATIVE: CASE EVENT DATE: 20141224
